FAERS Safety Report 9424786 (Version 7)
Quarter: 2013Q4

REPORT INFORMATION
  Report Type: Spontaneous
  Country: US (occurrence: US)
  Receive Date: 20130729
  Receipt Date: 20131202
  Transmission Date: 20140711
  Serious: Yes (Hospitalization, Other)
  Sender: FDA-Public Use
  Company Number: US-PFIZER INC-2013219763

PATIENT
  Age: 45 Year
  Sex: Female
  Weight: 63.49 kg

DRUGS (1)
  1. LYRICA [Suspect]
     Indication: NEURALGIA
     Dosage: 100 MG, 4X/DAY

REACTIONS (5)
  - Paralysis [Unknown]
  - Bedridden [Unknown]
  - Infected skin ulcer [Unknown]
  - Staphylococcal infection [Not Recovered/Not Resolved]
  - Fatigue [Unknown]
